FAERS Safety Report 14689541 (Version 1)
Quarter: 2018Q1

REPORT INFORMATION
  Report Type: Spontaneous
  Country: ZA (occurrence: ZA)
  Receive Date: 20180328
  Receipt Date: 20180328
  Transmission Date: 20180509
  Serious: Yes (Hospitalization, Other)
  Sender: FDA-Public Use
  Company Number: ZA-PFIZER INC-2018125313

PATIENT
  Age: 81 Year
  Sex: Female

DRUGS (8)
  1. FOXAIR [Suspect]
     Active Substance: FLUTICASONE PROPIONATE\SALMETEROL XINAFOATE
     Dosage: 50/250 UG, UNK
  2. XALATAN [Suspect]
     Active Substance: LATANOPROST
     Dosage: 50 UG, UNK
  3. PRITOR /01102601/ [Suspect]
     Active Substance: TELMISARTAN
     Dosage: 40 MG, UNK
  4. AVAMYS [Suspect]
     Active Substance: FLUTICASONE FUROATE
     Dosage: 27 UG, UNK
  5. FUROSEMIDE. [Suspect]
     Active Substance: FUROSEMIDE
     Dosage: 40 MG, UNK
  6. ADCO-SIMVASTATIN [Suspect]
     Active Substance: SIMVASTATIN
     Dosage: 20 MG, UNK
  7. PLENISH-K [Suspect]
     Active Substance: POTASSIUM CHLORIDE
     Dosage: 600 MG, UNK
  8. ASTHAVENT /00139501/ [Suspect]
     Active Substance: ALBUTEROL
     Dosage: 100 UG, UNK

REACTIONS (5)
  - Bronchitis [Not Recovered/Not Resolved]
  - Arthritis [Not Recovered/Not Resolved]
  - Malaise [Unknown]
  - Cystitis [Recovered/Resolved]
  - Disease recurrence [Recovered/Resolved]

NARRATIVE: CASE EVENT DATE: 2018
